FAERS Safety Report 17147249 (Version 1)
Quarter: 2019Q4

REPORT INFORMATION
  Report Type: Spontaneous
  Country: US (occurrence: US)
  Receive Date: 20191212
  Receipt Date: 20191212
  Transmission Date: 20200122
  Serious: Yes (Hospitalization)
  Sender: FDA-Public Use
  Company Number: US-ALLERGAN-1950660US

PATIENT
  Sex: Male

DRUGS (2)
  1. KEPPRA [Concomitant]
     Active Substance: LEVETIRACETAM
  2. TRIPTORELIN PAMOATE - BP [Suspect]
     Active Substance: TRIPTORELIN PAMOATE
     Indication: PRODUCT USED FOR UNKNOWN INDICATION
     Dosage: UNK UNK, SINGLE
     Route: 030
     Dates: start: 20190215, end: 20190215

REACTIONS (2)
  - Neurosurgery [Unknown]
  - Mood altered [Not Recovered/Not Resolved]

NARRATIVE: CASE EVENT DATE: 2019
